FAERS Safety Report 13435751 (Version 1)
Quarter: 2017Q2

REPORT INFORMATION
  Report Type: Spontaneous
  Country: US (occurrence: US)
  Receive Date: 20170412
  Receipt Date: 20170412
  Transmission Date: 20170830
  Serious: No
  Sender: FDA-Public Use
  Company Number: US-SA-2016SA118638

PATIENT
  Age: 52 Year
  Sex: Male
  Weight: 194 kg

DRUGS (3)
  1. ALLEGRA ALLERGY [Suspect]
     Active Substance: FEXOFENADINE HYDROCHLORIDE
     Indication: SNEEZING
     Dosage: STARTED 4 DAYS AGO AND STOPPED ON THE DAY OF REPORTING.
     Route: 065
     Dates: start: 20160618, end: 20160622
  2. ALLEGRA ALLERGY [Suspect]
     Active Substance: FEXOFENADINE HYDROCHLORIDE
     Indication: HYPERSENSITIVITY
     Dosage: STARTED 4 DAYS AGO AND STOPPED ON THE DAY OF REPORTING.
     Route: 065
     Dates: start: 20160618, end: 20160622
  3. ALLEGRA ALLERGY [Suspect]
     Active Substance: FEXOFENADINE HYDROCHLORIDE
     Indication: EYE PRURITUS
     Dosage: STARTED 4 DAYS AGO AND STOPPED ON THE DAY OF REPORTING.
     Route: 065
     Dates: start: 20160618, end: 20160622

REACTIONS (1)
  - Drug ineffective [Unknown]
